FAERS Safety Report 9515115 (Version 1)
Quarter: 2013Q3

REPORT INFORMATION
  Report Type: Spontaneous
  Country: IT (occurrence: IT)
  Receive Date: 20130911
  Receipt Date: 20130911
  Transmission Date: 20140515
  Serious: Yes (Hospitalization)
  Sender: FDA-Public Use
  Company Number: IT-ELI_LILLY_AND_COMPANY-IT201309000166

PATIENT
  Sex: Male

DRUGS (2)
  1. CYMBALTA [Suspect]
     Indication: DEPRESSION
     Dosage: 90 MG, UNK
     Dates: start: 201305
  2. CYMBALTA [Suspect]
     Dosage: 60 MG, UNK

REACTIONS (5)
  - Bipolar disorder [Unknown]
  - Insomnia [Unknown]
  - Antisocial behaviour [Unknown]
  - Personality change [Unknown]
  - Alcoholism [Unknown]
